FAERS Safety Report 17861184 (Version 1)
Quarter: 2020Q2

REPORT INFORMATION
  Report Type: Spontaneous
  Country: DE (occurrence: DE)
  Receive Date: 20200604
  Receipt Date: 20200604
  Transmission Date: 20200714
  Serious: Yes (Congenital Anomaly, Other)
  Sender: FDA-Public Use
  Company Number: DE-PFIZER INC-2020214075

PATIENT
  Age: 1 Day
  Sex: Female
  Weight: 4.02 kg

DRUGS (4)
  1. INFLUVAC TETRA [Concomitant]
     Active Substance: INFLUENZA VIRUS VACCINE QUADRIVALENT TYPE A+B
     Indication: IMMUNISATION
     Dosage: UNK
     Route: 064
     Dates: start: 20181108, end: 20181108
  2. FOLIO FORTE [Concomitant]
     Active Substance: FOLIC ACID\VITAMINS
     Indication: PROPHYLAXIS OF NEURAL TUBE DEFECT
     Dosage: UNK; 0.8 [MG/D (UP TO 0.4 MG/D) ]
     Route: 064
     Dates: start: 20180725, end: 20190421
  3. SERTRALINE HCL [Suspect]
     Active Substance: SERTRALINE HYDROCHLORIDE
     Dosage: 50 MG, DAILY (50 MG/D)
     Route: 064
     Dates: end: 20190421
  4. SERTRALINE HCL [Suspect]
     Active Substance: SERTRALINE HYDROCHLORIDE
     Indication: PANIC ATTACK
     Dosage: 50 [MG/D (UP TO 25) ]/ 25 MG/D UNTIL GW 25
     Route: 064
     Dates: start: 20180725

REACTIONS (5)
  - Atrial septal defect [Recovered/Resolved]
  - Infantile haemangioma [Recovering/Resolving]
  - Electrocardiogram QT prolonged [Recovered/Resolved]
  - Pulmonary artery stenosis congenital [Recovered/Resolved]
  - Maternal exposure during pregnancy [Unknown]

NARRATIVE: CASE EVENT DATE: 20190421
